FAERS Safety Report 14067197 (Version 7)
Quarter: 2018Q1

REPORT INFORMATION
  Report Type: Spontaneous
  Country: US (occurrence: US)
  Receive Date: 20171009
  Receipt Date: 20180201
  Transmission Date: 20180508
  Serious: Yes (Hospitalization, Other)
  Sender: FDA-Public Use
  Company Number: US-CELGENEUS-USA-20171000769

PATIENT
  Sex: Male
  Weight: 83.99 kg

DRUGS (3)
  1. REVLIMID [Suspect]
     Active Substance: LENALIDOMIDE
     Indication: PLASMA CELL MYELOMA
     Dosage: 25 MILLIGRAM
     Route: 048
     Dates: start: 201202
  2. REVLIMID [Suspect]
     Active Substance: LENALIDOMIDE
     Dosage: 10 MILLIGRAM
     Route: 048
     Dates: start: 201404
  3. REVLIMID [Suspect]
     Active Substance: LENALIDOMIDE
     Dosage: 25 MILLIGRAM
     Route: 048
     Dates: start: 201710

REACTIONS (7)
  - Femur fracture [Unknown]
  - Wrist fracture [Unknown]
  - Fatigue [Not Recovered/Not Resolved]
  - Fracture [Unknown]
  - Plasma cell myeloma [Unknown]
  - Lung neoplasm [Unknown]
  - Skin lesion [Unknown]

NARRATIVE: CASE EVENT DATE: 2017
